FAERS Safety Report 24849756 (Version 1)
Quarter: 2025Q1

REPORT INFORMATION
  Report Type: Spontaneous
  Country: US (occurrence: US)
  Receive Date: 20250116
  Receipt Date: 20250116
  Transmission Date: 20250408
  Serious: No
  Sender: MISSION PHARMACAL COMPANY
  Company Number: US-Mission Pharmacal Company-2169124

PATIENT
  Age: 66 Year
  Sex: Female

DRUGS (2)
  1. THIOLA [Suspect]
     Active Substance: TIOPRONIN
     Indication: Cystinuria
  2. CORTISONE (HYDROCORTISONE) [Concomitant]
     Active Substance: HYDROCORTISONE

REACTIONS (6)
  - Blood blister [Unknown]
  - Tongue blistering [Unknown]
  - Glossodynia [Unknown]
  - Pruritus [Unknown]
  - Blister [Unknown]
  - Impaired healing [Unknown]
